FAERS Safety Report 9679116 (Version 1)
Quarter: 2013Q4

REPORT INFORMATION
  Report Type: Spontaneous
  Country: RO (occurrence: None)
  Receive Date: 20131107
  Receipt Date: 20131107
  Transmission Date: 20140711
  Serious: Yes (Life-Threatening, Hospitalization, Other)
  Sender: FDA-Public Use
  Company Number: DAV-AE-DIL-13-01

PATIENT
  Age: 81 Year
  Sex: Female

DRUGS (3)
  1. DILTIAZEM [Suspect]
     Indication: HYPERTENSION
     Dosage: 96 TABS OF 60MG
  2. DILTIAZEM [Suspect]
     Indication: MYOCARDIAL ISCHAEMIA
     Dosage: 96 TABS OF 60MG
  3. INDAPAMIDE SR [Concomitant]

REACTIONS (9)
  - Suicide attempt [None]
  - Cardiac disorder [None]
  - Loss of consciousness [None]
  - Metabolic acidosis [None]
  - Rales [None]
  - Atrioventricular block [None]
  - Overdose [None]
  - Oxygen saturation decreased [None]
  - Sinus bradycardia [None]
